FAERS Safety Report 4527359-9 (Version None)
Quarter: 2004Q4

REPORT INFORMATION
  Report Type: 
  Country: None (occurrence: None)
  Receive Date: 20041214
  Receipt Date: 20041214
  Transmission Date: 20050328
  Serious: No
  Sender: FDA-Public Use
  Company Number: None

PATIENT
  Age: 31 Year
  Sex: Male
  Weight: 70 kg

DRUGS (1)
  1. PRIMAQUINE PHOSPHATE [Suspect]
     Indication: MALARIA PROPHYLAXIS
     Dosage: 15 MG   Q DAY   ORAL
     Route: 048
     Dates: start: 20041201, end: 20041205

REACTIONS (3)
  - CYANOSIS [None]
  - FEELING ABNORMAL [None]
  - OXYGEN SATURATION DECREASED [None]
